FAERS Safety Report 18878619 (Version 1)
Quarter: 2021Q1

REPORT INFORMATION
  Report Type: Spontaneous
  Country: US (occurrence: US)
  Receive Date: 20210211
  Receipt Date: 20210211
  Transmission Date: 20210420
  Serious: Yes (Other)
  Sender: FDA-Public Use
  Company Number: None

PATIENT
  Age: 39 Year
  Sex: Female
  Weight: 84.6 kg

DRUGS (4)
  1. BUPERION HCL [Concomitant]
  2. NUTRA THROD [Concomitant]
  3. ATOMOXETINE HCL 10MG [Suspect]
     Active Substance: ATOMOXETINE HYDROCHLORIDE
     Indication: ATTENTION DEFICIT HYPERACTIVITY DISORDER
     Dosage: ?          QUANTITY:1 CAPSULE(S);?
     Route: 048
     Dates: start: 20210206, end: 20210211
  4. MULTI VITAMIN [Concomitant]
     Active Substance: VITAMINS

REACTIONS (6)
  - Angina pectoris [None]
  - Dizziness [None]
  - Hepatic pain [None]
  - Asthenia [None]
  - Eye disorder [None]
  - Pain in extremity [None]

NARRATIVE: CASE EVENT DATE: 20210206
